FAERS Safety Report 10086981 (Version 2)
Quarter: 2014Q2

REPORT INFORMATION
  Report Type: Report from Study
  Country: BD (occurrence: BD)
  Receive Date: 20140418
  Receipt Date: 20140530
  Transmission Date: 20141212
  Serious: Yes (Death, Hospitalization)
  Sender: FDA-Public Use
  Company Number: PHHY2014BD047503

PATIENT
  Age: 75 Year
  Sex: Female

DRUGS (2)
  1. EXELON [Suspect]
     Dosage: 1.5 MG, UNK
     Route: 048
     Dates: start: 201306, end: 20140315
  2. EXELON PATCH [Suspect]
     Indication: DEMENTIA
     Dosage: 5 CM (DAILY DOSE: 4.6 MG/24 HOURS)
     Route: 062
     Dates: start: 20140316

REACTIONS (2)
  - Pyrexia [Fatal]
  - Dyspnoea [Fatal]
